FAERS Safety Report 5170007-8 (Version None)
Quarter: 2006Q4

REPORT INFORMATION
  Report Type: 
  Country: None (occurrence: None)
  Receive Date: 20061212
  Receipt Date: 20061206
  Transmission Date: 20070319
  Serious: Yes (Life-Threatening)
  Sender: FDA-Public Use
  Company Number: IT-GLAXOSMITHKLINE-B0449963A

PATIENT
  Age: 53 Year
  Sex: Female

DRUGS (2)
  1. CEFTAZIDIME SODIUM [Suspect]
     Indication: RESPIRATORY DISTRESS
     Route: 042
     Dates: start: 20060930, end: 20060930
  2. ELECTROLYTES [Concomitant]
     Route: 042
     Dates: start: 20060920, end: 20060930

REACTIONS (2)
  - PHARMACEUTICAL PRODUCT COMPLAINT [None]
  - PROCEDURAL COMPLICATION [None]
